FAERS Safety Report 21074156 (Version 1)
Quarter: 2022Q3

REPORT INFORMATION
  Report Type: Spontaneous
  Country: FR (occurrence: FR)
  Receive Date: 20220713
  Receipt Date: 20220713
  Transmission Date: 20221027
  Serious: Yes (Life-Threatening, Hospitalization, Other)
  Sender: FDA-Public Use
  Company Number: FR-BAUSCH-BL-2022-015965

PATIENT
  Age: 44 Year
  Sex: Female
  Weight: 71 kg

DRUGS (3)
  1. DILTIAZEM HYDROCHLORIDE [Suspect]
     Active Substance: DILTIAZEM HYDROCHLORIDE
     Indication: Toxicity to various agents
     Route: 048
     Dates: start: 20210201, end: 20210201
  2. ALPRAZOLAM [Suspect]
     Active Substance: ALPRAZOLAM
     Indication: Toxicity to various agents
     Route: 048
     Dates: start: 20210201, end: 20210201
  3. IMOVANE [Suspect]
     Active Substance: ZOPICLONE
     Indication: Toxicity to various agents
     Route: 048
     Dates: start: 20210201, end: 20210201

REACTIONS (4)
  - Supraventricular extrasystoles [Recovered/Resolved]
  - Hypotension [Recovered/Resolved]
  - Sinoatrial block [Recovered/Resolved]
  - Bradycardia [Recovered/Resolved]

NARRATIVE: CASE EVENT DATE: 20210202
